FAERS Safety Report 11264647 (Version 1)
Quarter: 2015Q3

REPORT INFORMATION
  Report Type: Spontaneous
  Country: TW (occurrence: None)
  Receive Date: 20150709
  Receipt Date: 20150709
  Transmission Date: 20151125
  Serious: Yes (Other)
  Sender: FDA-Public Use
  Company Number: UCM201506-000458

PATIENT
  Age: 85 Year
  Sex: Male

DRUGS (2)
  1. DIVALPROEX SODIUM. [Suspect]
     Active Substance: DIVALPROEX SODIUM
  2. QUETIAPINE (QUETIAPINE) (QUETIAPINE) [Suspect]
     Active Substance: QUETIAPINE

REACTIONS (2)
  - Drug interaction [None]
  - Neutropenia [None]
